FAERS Safety Report 7877720-X (Version None)
Quarter: 2011Q4

REPORT INFORMATION
  Report Type: 
  Country: None (occurrence: None)
  Receive Date: 20111031
  Receipt Date: 20111031
  Transmission Date: 20120403
  Serious: Yes (Other)
  Sender: FDA-Public Use
  Company Number: None

PATIENT
  Age: 31 Year
  Sex: Female
  Weight: 77.11 kg

DRUGS (1)
  1. CITALOPRAM HYDROBROMIDE [Suspect]
     Indication: DEPRESSION
     Dosage: 80MG
     Route: 048
     Dates: start: 20080901, end: 20111027

REACTIONS (18)
  - MICTURITION DISORDER [None]
  - CONSTIPATION [None]
  - DISORIENTATION [None]
  - COLD SWEAT [None]
  - BACK PAIN [None]
  - HEART RATE DECREASED [None]
  - CHEST DISCOMFORT [None]
  - PALPITATIONS [None]
  - ABNORMAL SENSATION IN EYE [None]
  - HEADACHE [None]
  - STRESS [None]
  - CONTUSION [None]
  - SPEECH DISORDER [None]
  - AMNESIA [None]
  - VISION BLURRED [None]
  - RESTLESS LEGS SYNDROME [None]
  - MIDDLE INSOMNIA [None]
  - DYSPNOEA [None]
